FAERS Safety Report 6466286-7 (Version None)
Quarter: 2009Q4

REPORT INFORMATION
  Report Type: 
  Country: None (occurrence: None)
  Receive Date: 20091202
  Receipt Date: 20091127
  Transmission Date: 20100525
  Serious: Yes (Death, Hospitalization, Other)
  Sender: FDA-Public Use
  Company Number: PHHO2008DE10662

PATIENT
  Sex: Male

DRUGS (3)
  1. CERTICAN [Suspect]
     Indication: RENAL TRANSPLANT
     Dosage: UNK
     Route: 048
     Dates: start: 20080314, end: 20080731
  2. MYFORTIC [Suspect]
     Indication: RENAL TRANSPLANT
     Dosage: 720MG
     Route: 048
     Dates: start: 20071214, end: 20080730
  3. DECORTIN [Concomitant]
     Indication: RENAL TRANSPLANT
     Dosage: 10MG
     Route: 048
     Dates: start: 20071213, end: 20080730

REACTIONS (5)
  - BRONCHIAL CARCINOMA [None]
  - GASTROINTESTINAL HAEMORRHAGE [None]
  - MULTI-ORGAN FAILURE [None]
  - NECROTISING FASCIITIS [None]
  - SEPSIS [None]
